FAERS Safety Report 15564187 (Version 1)
Quarter: 2018Q4

REPORT INFORMATION
  Report Type: Spontaneous
  Country: CA (occurrence: CA)
  Receive Date: 20181030
  Receipt Date: 20181030
  Transmission Date: 20190205
  Serious: Yes (Hospitalization)
  Sender: FDA-Public Use
  Company Number: CA-CELLTRION INC.-2018CA019001

PATIENT

DRUGS (8)
  1. INFLECTRA [Suspect]
     Active Substance: INFLIXIMAB-DYYB
     Dosage: 420 MG, CYCLIC (EVERY 0,2,6 WEEKS, THEN EVERY 8 WEEKS); INTRAVENOUS
     Route: 042
     Dates: start: 20180719
  2. INFLECTRA [Suspect]
     Active Substance: INFLIXIMAB-DYYB
     Dosage: 420 MG, CYCLIC (EVERY 0,2,6 WEEKS, THEN EVERY 8 WEEKS); INTRAVENOUS
     Route: 042
     Dates: start: 20181016
  3. AZATHIOPRINE. [Concomitant]
     Active Substance: AZATHIOPRINE
     Dosage: UNK
     Dates: start: 201801
  4. INFLECTRA [Suspect]
     Active Substance: INFLIXIMAB-DYYB
     Indication: COLITIS ULCERATIVE
     Dosage: 10 MG/KG, FOR WEEK 0
     Route: 042
     Dates: start: 20180224
  5. INFLECTRA [Suspect]
     Active Substance: INFLIXIMAB-DYYB
     Dosage: 5 MG/KG, CYCLIC
     Route: 042
     Dates: start: 20180309
  6. INFLECTRA [Suspect]
     Active Substance: INFLIXIMAB-DYYB
     Dosage: 5 MG/KG, CYCLIC
     Route: 042
     Dates: start: 20180405
  7. INFLECTRA [Suspect]
     Active Substance: INFLIXIMAB-DYYB
     Dosage: 420 MG, CYCLIC (EVERY 0,2,6 WEEKS, THEN EVERY 8 WEEKS); INTRAVENOUS
     Route: 042
     Dates: start: 20180908
  8. INFLECTRA [Suspect]
     Active Substance: INFLIXIMAB-DYYB
     Dosage: 420 MG, CYCLIC (EVERY 0,2,6 WEEKS, THEN EVERY 8 WEEKS); INTRAVENOUS
     Route: 042
     Dates: start: 201809

REACTIONS (7)
  - Nasopharyngitis [Recovered/Resolved]
  - Condition aggravated [Unknown]
  - Blood pressure fluctuation [Unknown]
  - Bronchitis [Unknown]
  - Cough [Recovered/Resolved]
  - Product use issue [Unknown]
  - Rhinorrhoea [Unknown]

NARRATIVE: CASE EVENT DATE: 20180224
